FAERS Safety Report 9250756 (Version 2)
Quarter: 2014Q1

REPORT INFORMATION
  Report Type: Spontaneous
  Country: US (occurrence: US)
  Receive Date: 20130424
  Receipt Date: 20140107
  Transmission Date: 20141002
  Serious: Yes (Hospitalization, Disabling, Other)
  Sender: FDA-Public Use
  Company Number: US-ASTRAZENECA-2013SE27147

PATIENT
  Age: 61 Year
  Sex: Female
  Weight: 136.1 kg

DRUGS (14)
  1. NEXIUM [Suspect]
     Indication: GASTROOESOPHAGEAL REFLUX DISEASE
     Route: 048
     Dates: start: 1995, end: 2010
  2. NEXIUM [Suspect]
     Indication: GASTROOESOPHAGEAL REFLUX DISEASE
     Route: 048
     Dates: start: 20070605
  3. OMEPRAZOLE [Suspect]
     Indication: GASTROOESOPHAGEAL REFLUX DISEASE
     Route: 048
  4. OMEPRAZOLE [Suspect]
     Indication: GASTROOESOPHAGEAL REFLUX DISEASE
     Route: 048
     Dates: start: 20110208
  5. CRESTOR [Concomitant]
     Indication: BLOOD CHOLESTEROL
  6. LIPITOR [Concomitant]
     Indication: BLOOD PRESSURE
  7. CELEXA [Concomitant]
     Indication: ANXIETY
  8. SOTALOL [Concomitant]
     Indication: CARDIAC DISORDER
  9. PLAVIX [Concomitant]
     Indication: CARDIAC DISORDER
  10. BABY ASPIRIN/ASPIRIN [Concomitant]
     Indication: CARDIAC DISORDER
  11. VITAMIN C [Concomitant]
     Indication: BONE DISORDER
  12. ALTACE [Concomitant]
     Dates: start: 20070517
  13. VYTORIN [Concomitant]
     Dosage: 10 MG/80 MG
     Dates: start: 20070822
  14. SIMVASTATIN [Concomitant]
     Dates: start: 20101102

REACTIONS (11)
  - Upper limb fracture [Unknown]
  - Cardiac failure congestive [Unknown]
  - Fall [Unknown]
  - Haemoptysis [Unknown]
  - Wrist fracture [Unknown]
  - Radius fracture [Unknown]
  - Humerus fracture [Unknown]
  - Osteoporosis [Unknown]
  - Bone disorder [Unknown]
  - Rotator cuff syndrome [Unknown]
  - Nerve injury [Unknown]
